FAERS Safety Report 7393218-X (Version None)
Quarter: 2011Q2

REPORT INFORMATION
  Report Type: 
  Country: None (occurrence: None)
  Receive Date: 20110405
  Receipt Date: 20110324
  Transmission Date: 20111010
  Serious: Yes (Hospitalization)
  Sender: FDA-Public Use
  Company Number: US-BIOGENIDEC-2010BI008196

PATIENT
  Age: 52 Year
  Sex: Male

DRUGS (2)
  1. STEROIDS (NOS) [Concomitant]
     Indication: STEROID THERAPY
  2. TYSABRI [Suspect]
     Indication: MULTIPLE SCLEROSIS
     Route: 042
     Dates: start: 20070104, end: 20101227

REACTIONS (4)
  - STRESS FRACTURE [None]
  - HIP SURGERY [None]
  - ARTHRALGIA [None]
  - HIP FRACTURE [None]
